FAERS Safety Report 6683193-5 (Version None)
Quarter: 2010Q2

REPORT INFORMATION
  Report Type: 
  Country: None (occurrence: None)
  Receive Date: 20100415
  Receipt Date: 20100406
  Transmission Date: 20101027
  Serious: Yes (Hospitalization)
  Sender: FDA-Public Use
  Company Number: US-SANOFI-AVENTIS-2010SA011496

PATIENT
  Age: 89 Year
  Sex: Female
  Weight: 52.16 kg

DRUGS (7)
  1. LANTUS [Suspect]
     Dosage: CONSUMER STATED HER MOTHER TAKES 15-20 UNITS EVERY DAY (ADJUSTING DOSE)
     Route: 058
     Dates: start: 20081201
  2. SOLOSTAR [Suspect]
     Dates: start: 20081201
  3. LASIX [Concomitant]
  4. WELLBUTRIN [Concomitant]
  5. MICARDIS [Concomitant]
  6. METOPROLOL TARTRATE [Concomitant]
  7. DIGOXIN [Concomitant]

REACTIONS (2)
  - FALL [None]
  - HIP FRACTURE [None]
